FAERS Safety Report 5338856-0 (Version None)
Quarter: 2007Q2

REPORT INFORMATION
  Report Type: 
  Country: None (occurrence: None)
  Receive Date: 20070530
  Receipt Date: 20070518
  Transmission Date: 20071010
  Serious: Yes (Hospitalization)
  Sender: FDA-Public Use
  Company Number: GB-ELI_LILLY_AND_COMPANY-GB200705005008

PATIENT
  Age: 22 Year
  Sex: Female

DRUGS (5)
  1. CYMBALTA [Suspect]
     Indication: DEPRESSION
     Dosage: 60 MG, DAILY (1/D)
     Dates: start: 20070416
  2. BUPRENORPHINE HCL [Concomitant]
     Indication: PAIN
     Dosage: 200 UG, PRN
     Dates: start: 20060101
  3. ZOPICLONE [Concomitant]
     Indication: PAIN
     Dosage: 3.75 MG
     Dates: start: 20060101
  4. SALBUTAMOL [Concomitant]
     Indication: ASTHMA
     Dosage: 2 D/F, PRN
  5. SERETIDE [Concomitant]
     Indication: ASTHMA

REACTIONS (2)
  - DRUG EXPOSURE DURING PREGNANCY [None]
  - VOMITING [None]
